FAERS Safety Report 7413326-4 (Version None)
Quarter: 2011Q2

REPORT INFORMATION
  Report Type: 
  Country: None (occurrence: None)
  Receive Date: 20110413
  Receipt Date: 20101004
  Transmission Date: 20111010
  Serious: No
  Sender: FDA-Public Use
  Company Number: US-ASTRAZENECA-2010SE46882

PATIENT
  Sex: Female

DRUGS (7)
  1. NICOTINE PATCH [Concomitant]
  2. ATENOLOL [Suspect]
     Route: 048
  3. PROPRANOLOL [Suspect]
     Route: 048
  4. CLONOPIN [Concomitant]
  5. EFFEXOR XR [Concomitant]
  6. PROZAC [Concomitant]
  7. ALEVE [Concomitant]

REACTIONS (6)
  - ABDOMINAL PAIN UPPER [None]
  - HEADACHE [None]
  - MUSCLE TWITCHING [None]
  - MYALGIA [None]
  - CHEST PAIN [None]
  - ANXIETY [None]
